FAERS Safety Report 5033106-7 (Version None)
Quarter: 2006Q2

REPORT INFORMATION
  Report Type: 
  Country: None (occurrence: None)
  Receive Date: 20060622
  Receipt Date: 20060516
  Transmission Date: 20061013
  Serious: Yes (Death, Hospitalization, Other)
  Sender: FDA-Public Use
  Company Number: PHHO2006US08004

PATIENT
  Age: 73 Year
  Sex: Female
  Weight: 73.6 kg

DRUGS (21)
  1. ZOLEDRONIC ACID [Suspect]
     Indication: METASTASES TO BONE
     Dosage: 4 MG, QMO
     Route: 042
     Dates: start: 20060117, end: 20060508
  2. CALCIUM GLUCONATE [Concomitant]
  3. VITAMIN D [Concomitant]
  4. ASPIRIN [Concomitant]
  5. COREG [Concomitant]
  6. TRICOR [Concomitant]
  7. FOLTX [Concomitant]
  8. LASIX [Concomitant]
  9. HYDROCHLOROTHIAZIDE [Concomitant]
  10. HYDRALAZINE HCL [Concomitant]
  11. VISTARIL [Concomitant]
  12. ISOSORBIDE [Concomitant]
  13. CLARITIN [Concomitant]
  14. COZAAR [Concomitant]
  15. MEGESTROL [Concomitant]
  16. LOPRESSOR [Concomitant]
  17. POTASSIUM [Concomitant]
  18. COUMADIN [Concomitant]
  19. LIPITOR [Concomitant]
  20. ATARAX [Concomitant]
  21. PRILOSEC [Concomitant]

REACTIONS (18)
  - ACUTE MYOCARDIAL INFARCTION [None]
  - ATRIOVENTRICULAR BLOCK FIRST DEGREE [None]
  - BLOOD CREATININE INCREASED [None]
  - BRAIN NATRIURETIC PEPTIDE INCREASED [None]
  - CARDIAC FAILURE CONGESTIVE [None]
  - CATHETER PLACEMENT [None]
  - CHEST DISCOMFORT [None]
  - DILATATION ATRIAL [None]
  - DYSPNOEA [None]
  - EJECTION FRACTION DECREASED [None]
  - HYPERTENSION [None]
  - MALIGNANT NEOPLASM PROGRESSION [None]
  - PALPITATIONS [None]
  - PYREXIA [None]
  - RALES [None]
  - RENAL FAILURE ACUTE [None]
  - SINUS TACHYCARDIA [None]
  - VENTRICULAR HYPERTROPHY [None]
